FAERS Safety Report 15035540 (Version 6)
Quarter: 2022Q4

REPORT INFORMATION
  Report Type: Spontaneous
  Country: US (occurrence: None)
  Receive Date: 20180620
  Receipt Date: 20221117
  Transmission Date: 20230113
  Serious: Yes (Hospitalization, Other)
  Sender: FDA-Public Use
  Company Number: 2018SE76980

PATIENT
  Age: 575 Month
  Sex: Female
  Weight: 68.9 kg

DRUGS (41)
  1. NEXIUM [Suspect]
     Active Substance: ESOMEPRAZOLE MAGNESIUM
     Indication: Gastrooesophageal reflux disease
     Route: 048
     Dates: start: 2004, end: 2016
  2. NEXIUM [Suspect]
     Active Substance: ESOMEPRAZOLE MAGNESIUM
     Indication: Gastrooesophageal reflux disease
     Route: 048
     Dates: start: 200401, end: 200412
  3. NEXIUM [Suspect]
     Active Substance: ESOMEPRAZOLE MAGNESIUM
     Indication: Gastrooesophageal reflux disease
     Route: 048
     Dates: start: 20040115
  4. OMEPRAZOLE [Suspect]
     Active Substance: OMEPRAZOLE
     Indication: Gastrooesophageal reflux disease
     Route: 065
     Dates: start: 201411, end: 201606
  5. OMEPRAZOLE [Suspect]
     Active Substance: OMEPRAZOLE
     Indication: Gastrooesophageal reflux disease
     Route: 048
     Dates: start: 20150309
  6. PREVACID [Suspect]
     Active Substance: LANSOPRAZOLE
     Indication: Gastrooesophageal reflux disease
     Route: 065
     Dates: start: 2004, end: 2016
  7. PREVACID [Suspect]
     Active Substance: LANSOPRAZOLE
     Indication: Gastrooesophageal reflux disease
     Route: 065
     Dates: start: 200502, end: 200511
  8. PREVACID [Suspect]
     Active Substance: LANSOPRAZOLE
     Indication: Gastrooesophageal reflux disease
     Route: 065
     Dates: start: 200606, end: 200610
  9. PROTONIX [Suspect]
     Active Substance: PANTOPRAZOLE SODIUM
     Indication: Gastrooesophageal reflux disease
     Route: 065
     Dates: start: 201411, end: 201606
  10. PROTONIX [Suspect]
     Active Substance: PANTOPRAZOLE SODIUM
     Indication: Gastrooesophageal reflux disease
     Route: 065
     Dates: start: 201404, end: 201409
  11. TOPROL XL [Concomitant]
     Active Substance: METOPROLOL SUCCINATE
     Indication: Cardiac disorder
     Route: 065
     Dates: start: 2001, end: 2016
  12. SYNTHROID [Concomitant]
     Active Substance: LEVOTHYROXINE SODIUM
     Indication: Thyroid disorder
     Route: 065
     Dates: start: 2000, end: 2018
  13. POTASSIUM [Concomitant]
     Active Substance: POTASSIUM
     Indication: Renal disorder
     Route: 065
     Dates: start: 2006
  14. LASIX [Concomitant]
     Active Substance: FUROSEMIDE
     Indication: Fluid retention
     Route: 065
     Dates: start: 2014
  15. TYLENOL [Concomitant]
     Active Substance: ACETAMINOPHEN
     Indication: Arthritis
     Route: 065
     Dates: start: 2010
  16. TUMS [Concomitant]
     Active Substance: CALCIUM CARBONATE
     Route: 065
     Dates: start: 2002, end: 2004
  17. ROLAIDS [Concomitant]
     Active Substance: CALCIUM CARBONATE\MAGNESIUM HYDROXIDE
     Route: 065
     Dates: start: 2002, end: 2004
  18. LIPITOR [Concomitant]
     Active Substance: ATORVASTATIN CALCIUM
     Indication: Blood cholesterol
  19. AMLODIPINE [Concomitant]
     Active Substance: AMLODIPINE BESYLATE
  20. TRAMADOL [Concomitant]
     Active Substance: TRAMADOL
  21. POTASSIUM CHLORIDE [Concomitant]
     Active Substance: POTASSIUM CHLORIDE
  22. RANEXA [Concomitant]
     Active Substance: RANOLAZINE
  23. ACETAMINOPHEN\HYDROCODONE BITARTRATE [Concomitant]
     Active Substance: ACETAMINOPHEN\HYDROCODONE BITARTRATE
  24. SUMATRIPTAN [Concomitant]
     Active Substance: SUMATRIPTAN
  25. MAXZIDE [Concomitant]
     Active Substance: HYDROCHLOROTHIAZIDE\TRIAMTERENE
  26. TORADOL [Concomitant]
     Active Substance: KETOROLAC TROMETHAMINE
  27. SULINDAC [Concomitant]
     Active Substance: SULINDAC
  28. CHANTIX [Concomitant]
     Active Substance: VARENICLINE TARTRATE
  29. DYAZIDE [Concomitant]
     Active Substance: HYDROCHLOROTHIAZIDE\TRIAMTERENE
  30. MOTRIN [Concomitant]
     Active Substance: IBUPROFEN
  31. PAMELOR [Concomitant]
     Active Substance: NORTRIPTYLINE HYDROCHLORIDE
  32. TOPROL XL [Concomitant]
     Active Substance: METOPROLOL SUCCINATE
  33. LEVOTHYROXINE [Concomitant]
     Active Substance: LEVOTHYROXINE
  34. TRIAMTERENE [Concomitant]
     Active Substance: TRIAMTERENE
  35. VYTORIN [Concomitant]
     Active Substance: EZETIMIBE\SIMVASTATIN
  36. HYDROCHLOROTHIAZIDE [Concomitant]
     Active Substance: HYDROCHLOROTHIAZIDE
  37. IODINE [Concomitant]
     Active Substance: IODINE
  38. VITAMIN B12 [Concomitant]
     Active Substance: CYANOCOBALAMIN
  39. SUMATRIPTAN SUCCINATE [Concomitant]
     Active Substance: SUMATRIPTAN SUCCINATE
  40. IMITREX [Concomitant]
     Active Substance: SUMATRIPTAN SUCCINATE
  41. ETODOLAC [Concomitant]
     Active Substance: ETODOLAC

REACTIONS (5)
  - Acute kidney injury [Not Recovered/Not Resolved]
  - Chronic kidney disease [Not Recovered/Not Resolved]
  - Renal failure [Unknown]
  - Renal impairment [Unknown]
  - End stage renal disease [Not Recovered/Not Resolved]

NARRATIVE: CASE EVENT DATE: 20150701
